FAERS Safety Report 6296390-8 (Version None)
Quarter: 2009Q3

REPORT INFORMATION
  Report Type: 
  Country: None (occurrence: None)
  Receive Date: 20090804
  Receipt Date: 20090727
  Transmission Date: 20100115
  Serious: Yes (Other)
  Sender: FDA-Public Use
  Company Number: NSADSS2002005943

PATIENT
  Age: 72 Year
  Sex: Female

DRUGS (5)
  1. REMICADE [Suspect]
     Route: 041
     Dates: start: 20000313, end: 20000424
  2. REMICADE [Suspect]
     Indication: RHEUMATOID ARTHRITIS
     Route: 041
     Dates: start: 20000313, end: 20000424
  3. METHOTREXATE [Concomitant]
     Route: 065
  4. CORTICOSTEROID NOS [Concomitant]
     Route: 065
  5. LEVOTHROID [Concomitant]

REACTIONS (1)
  - MYCOBACTERIAL INFECTION [None]
